FAERS Safety Report 18538994 (Version 1)
Quarter: 2020Q4

REPORT INFORMATION
  Report Type: Spontaneous
  Country: US (occurrence: US)
  Receive Date: 20201123
  Receipt Date: 20201123
  Transmission Date: 20210114
  Serious: Yes (Life-Threatening, Other)
  Sender: FDA-Public Use
  Company Number: None

PATIENT
  Age: 35 Year
  Sex: Male
  Weight: 76.5 kg

DRUGS (1)
  1. OPMS LIQUID KRATOM [Suspect]
     Active Substance: HERBALS\MITRAGYNINE
     Indication: SUBSTANCE USE

REACTIONS (4)
  - Euphoric mood [None]
  - Withdrawal syndrome [None]
  - Near death experience [None]
  - Drug dependence [None]

NARRATIVE: CASE EVENT DATE: 20201120
